FAERS Safety Report 8995189 (Version 1)
Quarter: 2012Q4

REPORT INFORMATION
  Report Type: Spontaneous
  Country: US (occurrence: None)
  Receive Date: 20121228
  Receipt Date: 20121228
  Transmission Date: 20130627
  Serious: Yes (Hospitalization)
  Sender: FDA-Public Use
  Company Number: None

PATIENT
  Age: 71 Year
  Sex: Male
  Weight: 79.1 kg

DRUGS (2)
  1. DABIGATRAN [Suspect]
     Indication: ATRIAL FIBRILLATION
     Route: 048
     Dates: start: 20120104, end: 20121217
  2. DABIGATRAN [Suspect]
     Indication: MITRAL VALVE REPLACEMENT
     Route: 048
     Dates: start: 20120104, end: 20121217

REACTIONS (6)
  - Nausea [None]
  - Dyspepsia [None]
  - Haemoglobin decreased [None]
  - Gastric ulcer [None]
  - Peptic ulcer [None]
  - Haemorrhage [None]
